FAERS Safety Report 23080272 (Version 8)
Quarter: 2024Q2

REPORT INFORMATION
  Report Type: Report from Study
  Country: DE (occurrence: DE)
  Receive Date: 20231018
  Receipt Date: 20240530
  Transmission Date: 20240716
  Serious: Yes (Other)
  Sender: FDA-Public Use
  Company Number: DE-PFM-2023-05783

PATIENT
  Age: 78 Year
  Sex: Male
  Weight: 75 kg

DRUGS (13)
  1. ENCORAFENIB [Suspect]
     Active Substance: ENCORAFENIB
     Indication: Malignant melanoma
     Dosage: 450 MG, 1X/DAY
     Route: 048
     Dates: start: 20230627
  2. BINIMETINIB [Suspect]
     Active Substance: BINIMETINIB
     Indication: Malignant melanoma
     Dosage: 45 MG, 2X/DAY
     Route: 048
     Dates: start: 20230627
  3. PREDNICARBATE [Concomitant]
     Active Substance: PREDNICARBATE
     Dosage: UNK
     Route: 065
     Dates: start: 20230625, end: 202306
  4. MOMETASONE FUROATE [Concomitant]
     Active Substance: MOMETASONE FUROATE
     Dosage: UNK (MOMETASON-OCTENIDIN)
     Route: 065
     Dates: start: 20230622, end: 20230624
  5. OXYGEN [Concomitant]
     Active Substance: OXYGEN
     Dosage: 2 LITER PER MINUTE
     Route: 065
     Dates: start: 20230622, end: 20230624
  6. TELMISARTAN [Concomitant]
     Active Substance: TELMISARTAN
     Dosage: UNK
     Route: 065
  7. TAMSULOSIN [Concomitant]
     Active Substance: TAMSULOSIN
     Dosage: UNK
     Route: 065
  8. AMLODIPINE [Concomitant]
     Active Substance: AMLODIPINE BESYLATE
     Dosage: UNK
     Route: 065
  9. LEVOTHYROXINE [Concomitant]
     Active Substance: LEVOTHYROXINE\LEVOTHYROXINE SODIUM
     Dosage: UNK
     Route: 065
  10. KLISYRI [Concomitant]
     Active Substance: TIRBANIBULIN
     Indication: Actinic keratosis
     Dosage: UNK
     Route: 065
     Dates: start: 20230928, end: 20231228
  11. TOLAK [FLUOROURACIL] [Concomitant]
     Indication: Actinic keratosis
     Dosage: UNK (TOLASK)
     Route: 065
     Dates: start: 20231127, end: 20231228
  12. MOMETASONE FUROATE [Concomitant]
     Active Substance: MOMETASONE FUROATE
     Indication: Eczema
     Dosage: UNK
     Route: 065
     Dates: start: 20240123, end: 202403
  13. FEXOFENADINE [Concomitant]
     Active Substance: FEXOFENADINE HYDROCHLORIDE
     Indication: Eczema
     Dosage: UNK
     Route: 065
     Dates: start: 20240123, end: 202403

REACTIONS (6)
  - Second primary malignancy [Recovered/Resolved]
  - Basal cell carcinoma [Recovered/Resolved]
  - Alanine aminotransferase increased [Recovered/Resolved]
  - Aspartate aminotransferase increased [Recovered/Resolved]
  - Hypophosphataemia [Not Recovered/Not Resolved]
  - Blood creatine phosphokinase increased [Not Recovered/Not Resolved]

NARRATIVE: CASE EVENT DATE: 20230828
